FAERS Safety Report 4350119-9 (Version None)
Quarter: 2004Q2

REPORT INFORMATION
  Report Type: 
  Country: None (occurrence: None)
  Receive Date: 20040429
  Receipt Date: 20040330
  Transmission Date: 20050107
  Serious: Yes (Other)
  Sender: FDA-Public Use
  Company Number: FR-ROCHE-363436

PATIENT
  Age: 33 Year
  Sex: Female

DRUGS (4)
  1. SORIATANE [Suspect]
     Route: 065
     Dates: start: 20030115, end: 20030315
  2. ORAL CONTRACEPTIVE NOS [Concomitant]
     Route: 048
  3. OMEPRAZOLE [Concomitant]
     Dates: start: 20040115
  4. PULMICORT [Concomitant]
     Dosage: DOSAGE REGIMEN REPORTED AS 1 PULVERISATION PER DAY.
     Dates: start: 20031015

REACTIONS (4)
  - DRUG EXPOSURE DURING PREGNANCY [None]
  - NO ADVERSE EFFECT [None]
  - PREGNANCY [None]
  - UNWANTED PREGNANCY [None]
